FAERS Safety Report 12823833 (Version 4)
Quarter: 2017Q2

REPORT INFORMATION
  Report Type: Spontaneous
  Country: US (occurrence: US)
  Receive Date: 20161006
  Receipt Date: 20170428
  Transmission Date: 20170830
  Serious: Yes (Other)
  Sender: FDA-Public Use
  Company Number: US-EMERGENT BIOSOLUTIONS-16BA00145SP

PATIENT
  Age: 25 Year
  Sex: Female
  Weight: 70 kg

DRUGS (14)
  1. PERIDEX [Concomitant]
     Active Substance: CHLORHEXIDINE GLUCONATE
     Indication: DENTAL DISORDER PROPHYLAXIS
     Dosage: 15 ML, BID
     Route: 048
     Dates: start: 20160924, end: 20160927
  2. FENTANYL. [Concomitant]
     Active Substance: FENTANYL
     Indication: PAIN
     Dosage: 60 ML/MIN, UNK
     Route: 042
     Dates: start: 20160924, end: 20160927
  3. DIPRIVAN [Concomitant]
     Active Substance: PROPOFOL
     Dosage: 1146 ML/MIN, UNK
     Route: 042
     Dates: start: 20160924, end: 20160927
  4. DULCOLAX NOS [Concomitant]
     Active Substance: BISACODYL OR DOCUSATE SODIUM
     Dosage: 10 MG, QD
     Route: 054
     Dates: start: 20160924, end: 20161001
  5. VERSED [Concomitant]
     Active Substance: MIDAZOLAM HYDROCHLORIDE
     Dosage: 5 MG/ML, UNK
     Dates: start: 20160924, end: 20160925
  6. PENICILLIN G POTASSIUM. [Concomitant]
     Active Substance: PENICILLIN G POTASSIUM
     Dosage: 16000000 UNIT, QD
     Route: 042
     Dates: start: 20160924, end: 20160925
  7. DIPRIVAN [Concomitant]
     Active Substance: PROPOFOL
     Dosage: 10 MG/ML, UNK
     Dates: start: 20160924, end: 20160925
  8. VANCOCIN [Concomitant]
     Active Substance: VANCOMYCIN HYDROCHLORIDE
     Dosage: 1000 MG, Q8H
     Route: 042
     Dates: start: 20160924, end: 20160925
  9. KETALAR [Concomitant]
     Active Substance: KETAMINE HYDROCHLORIDE
     Dosage: 10 MG/ML, UNK
     Dates: start: 20160924, end: 20160925
  10. VERSED [Concomitant]
     Active Substance: MIDAZOLAM HYDROCHLORIDE
     Dosage: 5 MG/ML, SINGLE
     Route: 042
     Dates: start: 20160924, end: 20160924
  11. BAT [Suspect]
     Active Substance: EQUINE BOTULINUM NEUROTOXIN A/B/C/D/E/F/G IMMUNE FAB2
     Indication: BOTULISM
     Dosage: 180 ML, SINGLE
     Route: 042
     Dates: start: 20160924, end: 20160925
  12. UNASYN [Concomitant]
     Active Substance: AMPICILLIN SODIUM\SULBACTAM SODIUM
     Dosage: 3 G, Q6H
     Route: 042
     Dates: start: 20160923, end: 20160924
  13. VIBRAMYCIN [Concomitant]
     Active Substance: DOXYCYCLINE
     Dosage: 100 MG, UNK
     Route: 040
     Dates: start: 20160921, end: 20160924
  14. KETALAR [Concomitant]
     Active Substance: KETAMINE HYDROCHLORIDE
     Dosage: 100 MG, SINGLE
     Route: 042
     Dates: start: 20160924, end: 20160924

REACTIONS (1)
  - Nephropathy toxic [Not Recovered/Not Resolved]

NARRATIVE: CASE EVENT DATE: 20160924
